FAERS Safety Report 9929204 (Version 1)
Quarter: 2014Q1

REPORT INFORMATION
  Report Type: Spontaneous
  Country: IT (occurrence: None)
  Receive Date: 20140224
  Receipt Date: 20140224
  Transmission Date: 20141002
  Serious: Yes (Hospitalization)
  Sender: FDA-Public Use
  Company Number: 2014AP001324

PATIENT
  Age: 72 Year
  Sex: Female

DRUGS (5)
  1. LEVOFLOXACIN (LEVOFLOXACIN) [Suspect]
     Indication: PRODUCT USED FOR UNKNOWN INDICATION
     Route: 048
     Dates: start: 20131230, end: 20140108
  2. ENALAPRIL MALEATE (ENALAPRIL MALEATE) [Suspect]
     Indication: HYPERTENSION
     Route: 048
     Dates: start: 20050101, end: 20140109
  3. MODURETIC [Suspect]
     Indication: HYPERTENSION
     Route: 048
     Dates: start: 20050101, end: 20140109
  4. COUMADIN /00014802/ (WARFARIN SODIUM) [Concomitant]
     Indication: HYPERTENSION
  5. EUTIROX (LEVOTHYROXINE SODIUM)?? [Concomitant]

REACTIONS (4)
  - Hyperkalaemia [None]
  - Hyponatraemia [None]
  - Hypotension [None]
  - Renal failure acute [None]
